FAERS Safety Report 8464141-4 (Version None)
Quarter: 2012Q2

REPORT INFORMATION
  Report Type: 
  Country: None (occurrence: None)
  Receive Date: 20120625
  Receipt Date: 20120621
  Transmission Date: 20120825
  Serious: No
  Sender: FDA-Public Use
  Company Number: US-B.I. PHARMACEUTICALS,INC./RIDGEFIELD-2012-BP-14262BP

PATIENT
  Sex: Female

DRUGS (4)
  1. GLYBURIDE [Concomitant]
  2. TRADJENTA [Suspect]
     Dosage: 5 MG
     Dates: start: 20120301
  3. ENALAPRIL MALEATE [Concomitant]
     Indication: RENAL DISORDER
  4. GLIMEPIRIDE [Concomitant]

REACTIONS (1)
  - BLOOD GLUCOSE INCREASED [None]
